FAERS Safety Report 20096654 (Version 1)
Quarter: 2021Q4

REPORT INFORMATION
  Report Type: Spontaneous
  Country: US (occurrence: US)
  Receive Date: 20211122
  Receipt Date: 20211122
  Transmission Date: 20220303
  Serious: Yes (Death)
  Sender: FDA-Public Use
  Company Number: US-BAYER-2021A248223

PATIENT
  Age: 52 Year
  Sex: Male

DRUGS (1)
  1. SORAFENIB [Suspect]
     Active Substance: SORAFENIB
     Indication: Chloroma
     Dosage: UNK

REACTIONS (3)
  - Death [Fatal]
  - Mucosal inflammation [None]
  - Off label use [None]
